FAERS Safety Report 20524835 (Version 1)
Quarter: 2022Q1

REPORT INFORMATION
  Report Type: Spontaneous
  Country: US (occurrence: None)
  Receive Date: 20220225
  Receipt Date: 20220225
  Transmission Date: 20220424
  Serious: No
  Sender: FDA-Public Use
  Company Number: None

PATIENT
  Age: 78 Year
  Sex: Male
  Weight: 79.83 kg

DRUGS (11)
  1. CAPECITABINE [Suspect]
     Active Substance: CAPECITABINE
     Indication: Neoplasm malignant
     Dosage: OTHER QUANTITY : 4T AM, 3T PM;?OTHER FREQUENCY : QD14DON7DOFF;?
     Route: 048
  2. AMBIEN [Concomitant]
     Active Substance: ZOLPIDEM TARTRATE
  3. LIDOCAINE PATCH [Concomitant]
     Active Substance: LIDOCAINE
  4. TRAMADOL [Concomitant]
     Active Substance: TRAMADOL
  5. CETIRIZINE [Concomitant]
     Active Substance: CETIRIZINE HYDROCHLORIDE
  6. ENALAPRIL [Concomitant]
     Active Substance: ENALAPRIL
  7. MOMETASONE [Concomitant]
     Active Substance: MOMETASONE
  8. SIMVASTATIN [Concomitant]
     Active Substance: SIMVASTATIN
  9. VITAMINS [Concomitant]
     Active Substance: VITAMINS
  10. TYLENOL [Concomitant]
     Active Substance: ACETAMINOPHEN
  11. CANNABIS SATIVA SUBSP. INDICA TOP [Concomitant]
     Active Substance: CANNABIS SATIVA SUBSP. INDICA TOP

REACTIONS (1)
  - Therapy non-responder [None]
